FAERS Safety Report 5863792-0 (Version None)
Quarter: 2008Q3

REPORT INFORMATION
  Report Type: 
  Country: None (occurrence: None)
  Receive Date: 20080827
  Receipt Date: 20080818
  Transmission Date: 20090109
  Serious: Yes (Hospitalization)
  Sender: FDA-Public Use
  Company Number: APP200800751

PATIENT
  Age: 39 Year
  Sex: Female

DRUGS (4)
  1. DIPRIVAN [Suspect]
     Indication: ANAESTHESIA
     Dates: start: 20080610, end: 20080610
  2. XYLOCAINE [Concomitant]
  3. FENTANYL-100 [Concomitant]
  4. VERSED [Concomitant]

REACTIONS (11)
  - CONVERSION DISORDER [None]
  - ELECTROCARDIOGRAM ABNORMAL [None]
  - HAEMATURIA [None]
  - HEMIPARESIS [None]
  - HYPERLIPIDAEMIA [None]
  - LOSS OF CONSCIOUSNESS [None]
  - RED BLOOD CELL COUNT DECREASED [None]
  - SPEECH DISORDER [None]
  - TACHYCARDIA [None]
  - UNRESPONSIVE TO STIMULI [None]
  - WHITE BLOOD CELL COUNT DECREASED [None]
